FAERS Safety Report 11281887 (Version 1)
Quarter: 2015Q3

REPORT INFORMATION
  Report Type: Spontaneous
  Country: US (occurrence: US)
  Receive Date: 20150717
  Receipt Date: 20150717
  Transmission Date: 20151125
  Serious: Yes (Other)
  Sender: FDA-Public Use
  Company Number: US-ALLERGAN-1513487US

PATIENT
  Age: 76 Year
  Sex: Male

DRUGS (1)
  1. LUMIGAN [Suspect]
     Active Substance: BIMATOPROST
     Indication: PRODUCT USED FOR UNKNOWN INDICATION
     Dosage: UNK
     Route: 047
     Dates: start: 2010

REACTIONS (2)
  - Cataract [Unknown]
  - Growth of eyelashes [Not Recovered/Not Resolved]

NARRATIVE: CASE EVENT DATE: 2010
